FAERS Safety Report 18010992 (Version 4)
Quarter: 2024Q4

REPORT INFORMATION
  Report Type: Spontaneous
  Country: PL (occurrence: PL)
  Receive Date: 20200710
  Receipt Date: 20241106
  Transmission Date: 20250114
  Serious: Yes (Other)
  Sender: NOVARTIS
  Company Number: None

PATIENT
  Age: 47 Year
  Sex: Female

DRUGS (10)
  1. CYCLOSPORINE [Suspect]
     Active Substance: CYCLOSPORINE
     Indication: Endocrine ophthalmopathy
     Dosage: UNK
     Route: 065
  2. METHYLPREDNISOLONE [Suspect]
     Active Substance: METHYLPREDNISOLONE
     Indication: Endocrine ophthalmopathy
     Dosage: 11 G
     Route: 065
  3. METHYLPREDNISOLONE [Suspect]
     Active Substance: METHYLPREDNISOLONE
     Dosage: 125 MG AS PRE-TREATMENT WITH ANTITHYMOCYTE-GLOBULIN
     Route: 065
  4. METHYLPREDNISOLONE [Suspect]
     Active Substance: METHYLPREDNISOLONE
     Dosage: 250 MG AS PRE-TREATMENT WITH ANTITHYMOCYTE-GLOBULIN
     Route: 065
  5. LEVOTHYROXINE SODIUM [Suspect]
     Active Substance: LEVOTHYROXINE SODIUM
     Indication: Graves^ disease
     Route: 065
  6. THYMOGLOBULINE [Suspect]
     Active Substance: LAPINE T-LYMPHOCYTE IMMUNE GLOBULIN
     Indication: Endocrine ophthalmopathy
     Dosage: 1.5 MG/KG TWO DOSES
     Route: 065
     Dates: start: 201807
  7. CLEMASTINE [Concomitant]
     Active Substance: CLEMASTINE
     Indication: Endocrine ophthalmopathy
     Dosage: AS PRE-TREATMENT WITH ANTITHYMOCYTE-GLOBULIN
     Route: 065
  8. CLEMASTINE [Concomitant]
     Active Substance: CLEMASTINE
     Dosage: AS PRE-TREATMENT WITH ANTITHYMOCYTE-GLOBULIN
     Route: 065
  9. ACETAMINOPHEN [Concomitant]
     Active Substance: ACETAMINOPHEN
     Indication: Endocrine ophthalmopathy
     Dosage: AS PRE-TREATMENT WITH ANTITHYMOCYTE-GLOBULIN
     Route: 065
  10. ACETAMINOPHEN [Concomitant]
     Active Substance: ACETAMINOPHEN
     Dosage: AS PRE-TREATMENT WITH ANTITHYMOCYTE-GLOBULIN
     Route: 065

REACTIONS (3)
  - Drug ineffective [Unknown]
  - Off label use [Unknown]
  - Product use in unapproved indication [Unknown]
